FAERS Safety Report 19354037 (Version 2)
Quarter: 2021Q3

REPORT INFORMATION
  Report Type: Spontaneous
  Country: US (occurrence: US)
  Receive Date: 20210602
  Receipt Date: 20210904
  Transmission Date: 20211014
  Serious: Yes (Other)
  Sender: FDA-Public Use
  Company Number: US-UCBSA-2021025472

PATIENT
  Age: 60 Year
  Sex: Female
  Weight: 76 kg

DRUGS (3)
  1. MONTELUKAST SODIUM. [Concomitant]
     Active Substance: MONTELUKAST SODIUM
     Indication: PRODUCT USED FOR UNKNOWN INDICATION
  2. ESCITALOPRAM OXALATE. [Concomitant]
     Active Substance: ESCITALOPRAM OXALATE
     Indication: PRODUCT USED FOR UNKNOWN INDICATION
  3. CIMZIA [Suspect]
     Active Substance: CERTOLIZUMAB PEGOL
     Indication: CROHN^S DISEASE
     Dosage: 400 MILLIGRAM, EV 30 DAYS
     Route: 058
     Dates: start: 2016

REACTIONS (4)
  - Tendon rupture [Unknown]
  - Drug ineffective [Unknown]
  - Crohn^s disease [Unknown]
  - Micturition urgency [Unknown]

NARRATIVE: CASE EVENT DATE: 202105
